FAERS Safety Report 17324873 (Version 1)
Quarter: 2020Q1

REPORT INFORMATION
  Report Type: Spontaneous
  Country: US (occurrence: US)
  Receive Date: 20200125
  Receipt Date: 20200125
  Transmission Date: 20200409
  Serious: Yes (Other)
  Sender: FDA-Public Use
  Company Number: None

PATIENT
  Age: 36 Year
  Sex: Female
  Weight: 76.5 kg

DRUGS (3)
  1. BURPROPION [Suspect]
     Active Substance: BUPROPION
     Indication: DEPRESSION
     Route: 048
     Dates: start: 20190610
  2. VITAMIN D [Concomitant]
     Active Substance: VITAMIN D NOS
  3. SUGAR BEAR HAIR GUMMY [Concomitant]

REACTIONS (2)
  - Pruritus [None]
  - Alopecia [None]

NARRATIVE: CASE EVENT DATE: 20190610
